FAERS Safety Report 9799972 (Version 1)
Quarter: 2014Q1

REPORT INFORMATION
  Report Type: Spontaneous
  Country: US (occurrence: US)
  Receive Date: 20140106
  Receipt Date: 20140106
  Transmission Date: 20141002
  Serious: No
  Sender: FDA-Public Use
  Company Number: US-GILEAD-2010-0030358

PATIENT
  Age: 82 Year
  Sex: Female

DRUGS (15)
  1. LETAIRIS [Suspect]
     Indication: PULMONARY ARTERIAL HYPERTENSION
     Route: 048
     Dates: start: 20070718
  2. B12 LIQUID HEALTH BO [Concomitant]
  3. METOPROLOL ER [Concomitant]
  4. LORAZEPAM [Concomitant]
  5. SENOKOT [Concomitant]
  6. TIMOPTIC [Concomitant]
  7. DEMADEX [Concomitant]
  8. SYNTHROID [Concomitant]
  9. FERROUS SULFATE [Concomitant]
  10. LEXAPRO [Concomitant]
  11. ASPIR-81 [Concomitant]
  12. VENTAVIS [Concomitant]
  13. ENSURE PLUS [Concomitant]
  14. TORSEMIDE [Concomitant]
  15. VITAMIN B-12 [Concomitant]

REACTIONS (1)
  - Fluid retention [Recovered/Resolved]
